FAERS Safety Report 5975579-9 (Version None)
Quarter: 2008Q4

REPORT INFORMATION
  Report Type: 
  Country: None (occurrence: None)
  Receive Date: 20081202
  Receipt Date: 20081125
  Transmission Date: 20090506
  Serious: Yes (Hospitalization)
  Sender: FDA-Public Use
  Company Number: FR-AVENTIS-200814185FR

PATIENT
  Age: 86 Year
  Sex: Male

DRUGS (14)
  1. LASIX [Suspect]
     Indication: DRUG USE FOR UNKNOWN INDICATION
     Route: 048
     Dates: end: 20080326
  2. DIGOXINE [Suspect]
     Indication: DRUG USE FOR UNKNOWN INDICATION
     Route: 048
     Dates: end: 20080326
  3. COLCHIMAX (FRANCE) [Suspect]
     Indication: DRUG USE FOR UNKNOWN INDICATION
     Route: 048
     Dates: end: 20080326
  4. ALDACTONE [Suspect]
     Indication: DRUG USE FOR UNKNOWN INDICATION
     Route: 048
     Dates: end: 20080326
  5. DIFFU K [Suspect]
     Indication: DRUG USE FOR UNKNOWN INDICATION
     Route: 048
     Dates: end: 20080326
  6. DRUGS AFFECTING MINERALIZATION [Concomitant]
     Route: 048
     Dates: end: 20080326
  7. NOVOLOG [Concomitant]
     Route: 058
     Dates: end: 20080328
  8. NOVORAPID [Concomitant]
     Route: 058
     Dates: end: 20080328
  9. SOLUPRED                           /00016201/ [Concomitant]
     Route: 048
     Dates: end: 20080328
  10. KARDEGIC                           /00002703/ [Concomitant]
     Route: 048
  11. AMIODARONE HCL [Concomitant]
     Route: 048
     Dates: end: 20080328
  12. EFFEXOR [Concomitant]
     Route: 048
  13. LEXOMIL [Concomitant]
     Route: 048
  14. ALLOPURINOL [Concomitant]
     Route: 048

REACTIONS (1)
  - RENAL FAILURE ACUTE [None]
